FAERS Safety Report 9613171 (Version 1)
Quarter: 2013Q4

REPORT INFORMATION
  Report Type: Report from Study
  Country: MX (occurrence: MX)
  Receive Date: 20131010
  Receipt Date: 20131010
  Transmission Date: 20140711
  Serious: Yes (Hospitalization)
  Sender: FDA-Public Use
  Company Number: MX-UCBSA-099962

PATIENT
  Age: 32 Year
  Sex: Female
  Weight: 42 kg

DRUGS (3)
  1. CERTOLIZUMAB PEGOL [Suspect]
     Indication: RHEUMATOID ARTHRITIS
     Route: 058
     Dates: start: 20130128
  2. METHOTREXATE [Concomitant]
     Indication: RHEUMATOID ARTHRITIS
     Route: 048
     Dates: start: 20100920, end: 20130825
  3. LEVOTHYROXINE [Concomitant]
     Indication: HYPOPITUITARISM
     Route: 048
     Dates: start: 1993

REACTIONS (1)
  - Pneumonia bacterial [Recovered/Resolved]
